FAERS Safety Report 5306789-1 (Version None)
Quarter: 2007Q2

REPORT INFORMATION
  Report Type: 
  Country: None (occurrence: None)
  Receive Date: 20070425
  Receipt Date: 20070417
  Transmission Date: 20071010
  Serious: Yes (Other)
  Sender: FDA-Public Use
  Company Number: HQWYE135715JUL04

PATIENT
  Sex: Female
  Weight: 99.88 kg

DRUGS (3)
  1. PREMPRO [Suspect]
     Indication: HORMONE REPLACEMENT THERAPY
     Dosage: UNSPECIFIED
     Route: 048
     Dates: start: 19970916, end: 19991201
  2. PROVERA [Suspect]
     Indication: HORMONE REPLACEMENT THERAPY
     Dosage: UNSPECIFIED
     Route: 048
     Dates: start: 19910101, end: 19991201
  3. PREMARIN [Suspect]
     Indication: HORMONE REPLACEMENT THERAPY
     Dosage: UNSPECIFIED
     Route: 048
     Dates: start: 19910101, end: 19970301

REACTIONS (1)
  - PAGET'S DISEASE OF NIPPLE [None]
